FAERS Safety Report 23182455 (Version 2)
Quarter: 2023Q4

REPORT INFORMATION
  Report Type: Report from Study
  Country: MX (occurrence: MX)
  Receive Date: 20231114
  Receipt Date: 20231117
  Transmission Date: 20240109
  Serious: Yes (Life-Threatening, Hospitalization, Other)
  Sender: FDA-Public Use
  Company Number: MX-002147023-NVSC2023MX241699

PATIENT
  Sex: Male
  Weight: 98 kg

DRUGS (3)
  1. EXFORGE HCT [Suspect]
     Active Substance: AMLODIPINE BESYLATE\HYDROCHLOROTHIAZIDE\VALSARTAN
     Indication: Hypertension
     Dosage: 1 DOSAGE FORM, QD (10/320/ 25 MG)
     Route: 048
     Dates: start: 2019
  2. AMLODIPINE [Concomitant]
     Active Substance: AMLODIPINE BESYLATE
     Indication: Hypertension
     Dosage: 1 DOSAGE FORM, BID (5 MG) (EVERY 12 HOURS)
     Route: 048
     Dates: start: 2018, end: 2019
  3. LOSARTAN [Concomitant]
     Active Substance: LOSARTAN
     Indication: Hypertension
     Dosage: 1 DOSAGE FORM, BID (EVERY 12 HOURS)
     Route: 048
     Dates: start: 2018, end: 2019

REACTIONS (9)
  - Feeling abnormal [Unknown]
  - Pleurisy [Recovered/Resolved]
  - Pneumonia [Recovered/Resolved]
  - Blood pressure increased [Not Recovered/Not Resolved]
  - Pleurisy [Recovered/Resolved]
  - Pulmonary pain [Not Recovered/Not Resolved]
  - Dyspnoea [Recovered/Resolved]
  - Vision blurred [Not Recovered/Not Resolved]
  - Stress [Not Recovered/Not Resolved]

NARRATIVE: CASE EVENT DATE: 20200101
